FAERS Safety Report 23681627 (Version 1)
Quarter: 2024Q1

REPORT INFORMATION
  Report Type: Spontaneous
  Country: GB (occurrence: US)
  Receive Date: 20240328
  Receipt Date: 20240328
  Transmission Date: 20240409
  Serious: No
  Sender: FDA-Public Use
  Company Number: GB-ABBVIE-21K-167-4052391-00

PATIENT
  Age: 16 Year
  Sex: Female

DRUGS (15)
  1. HUMIRA [Suspect]
     Active Substance: ADALIMUMAB
     Dosage: THIS WAS A LOADING DOSE AS HUMIRA WAS BEING RESTARTED;
     Route: 050
     Dates: start: 20180628, end: 20191008
  2. HUMIRA [Suspect]
     Active Substance: ADALIMUMAB
     Dosage: 40 MG, QW
     Route: 050
     Dates: start: 20180116, end: 20180628
  3. HUMIRA [Suspect]
     Active Substance: ADALIMUMAB
     Dosage: 40 MG, BIW
     Route: 050
     Dates: start: 20170510, end: 20180116
  4. HUMIRA [Suspect]
     Active Substance: ADALIMUMAB
     Dosage: 40 MG, BIW
     Route: 058
     Dates: start: 20191105
  5. HUMIRA [Suspect]
     Active Substance: ADALIMUMAB
     Indication: Crohn^s disease
     Dosage: 80 MG
     Route: 050
     Dates: start: 20141223, end: 20141223
  6. HUMIRA [Suspect]
     Active Substance: ADALIMUMAB
     Dosage: THIS WAS A LOADING DOSE AS HUMIRA WAS BEING RESTARTED;
     Route: 050
     Dates: start: 20190822, end: 20190822
  7. HUMIRA [Suspect]
     Active Substance: ADALIMUMAB
     Dosage: 40 MG
     Route: 050
     Dates: start: 20191105, end: 20210415
  8. HUMIRA [Suspect]
     Active Substance: ADALIMUMAB
     Dosage: 40 MG
     Route: 050
     Dates: start: 20210416, end: 202209
  9. HUMIRA [Suspect]
     Active Substance: ADALIMUMAB
     Dosage: 40 MG
     Route: 050
     Dates: start: 202210
  10. METHOTREXATE [Suspect]
     Active Substance: METHOTREXATE
     Indication: Crohn^s disease
     Dosage: 22.5 MG, QW
     Route: 050
     Dates: start: 20171207, end: 20180418
  11. METHOTREXATE [Suspect]
     Active Substance: METHOTREXATE
     Indication: Product used for unknown indication
     Dosage: 7.5 MG, QW
     Route: 050
     Dates: start: 20150116, end: 20171206
  12. CALCIUM\CHOLECALCIFEROL [Concomitant]
     Active Substance: CALCIUM\CHOLECALCIFEROL
     Indication: Bone disorder
     Dosage: 1 TABLET;
     Route: 050
     Dates: start: 201810
  13. CALCIUM\CHOLECALCIFEROL [Concomitant]
     Active Substance: CALCIUM\CHOLECALCIFEROL
     Indication: Bone disorder
     Dosage: 1 DOSAGE FORM, QD
     Route: 048
     Dates: start: 201810
  14. ACETAMINOPHEN [Concomitant]
     Active Substance: ACETAMINOPHEN
     Indication: Pain
     Dosage: 4-6 HOURLY;
     Route: 050
     Dates: start: 20200201, end: 20200415
  15. PREDNISOLONE [Concomitant]
     Active Substance: PREDNISOLONE
     Indication: Crohn^s disease
     Dosage: 30MG FOR 2 WEEKS,25MG FOR 2 WEEKS 20MG FOR 1 WEEK THEN REDUCING BY 5MG WEEKLY;
     Route: 065
     Dates: start: 20190517

REACTIONS (1)
  - Psoriasis [Not Recovered/Not Resolved]

NARRATIVE: CASE EVENT DATE: 20210204
